FAERS Safety Report 12696030 (Version 1)
Quarter: 2016Q3

REPORT INFORMATION
  Report Type: Spontaneous
  Country: US (occurrence: US)
  Receive Date: 20160829
  Receipt Date: 20160829
  Transmission Date: 20161109
  Serious: Yes (Other)
  Sender: FDA-Public Use
  Company Number: US-RELYPSA-RLY2016002010

PATIENT
  Age: 64 Year
  Sex: Female

DRUGS (3)
  1. VELTASSA [Suspect]
     Active Substance: PATIROMER
     Dosage: 8.4 UNK, UNK
     Route: 048
     Dates: start: 20160614, end: 20160615
  2. VELTASSA [Suspect]
     Active Substance: PATIROMER
     Indication: BLOOD POTASSIUM INCREASED
     Dosage: 8.4 G, QD
     Route: 048
     Dates: start: 20160605, end: 20160609
  3. ZONISAMIDE. [Concomitant]
     Active Substance: ZONISAMIDE
     Indication: SEIZURE
     Dosage: 100 MG, BID

REACTIONS (11)
  - Feeling abnormal [Recovered/Resolved]
  - Vision blurred [Recovered/Resolved]
  - Tremor [Recovered/Resolved]
  - Fall [Recovered/Resolved]
  - Joint stiffness [Not Recovered/Not Resolved]
  - Peripheral swelling [Recovered/Resolved]
  - Seizure [Recovered/Resolved]
  - Swelling face [Recovered/Resolved]
  - Dizziness postural [Recovered/Resolved]
  - Speech disorder [Recovered/Resolved]
  - Gait disturbance [Recovered/Resolved]

NARRATIVE: CASE EVENT DATE: 20160608
